FAERS Safety Report 16366110 (Version 2)
Quarter: 2019Q2

REPORT INFORMATION
  Report Type: Spontaneous
  Country: BR (occurrence: BR)
  Receive Date: 20190529
  Receipt Date: 20190615
  Transmission Date: 20190711
  Serious: Yes (Other)
  Sender: FDA-Public Use
  Company Number: BR-AMGEN-BRASP2019083230

PATIENT
  Age: 21 Year
  Sex: Male

DRUGS (1)
  1. BLINCYTO [Suspect]
     Active Substance: BLINATUMOMAB
     Indication: PRECURSOR B-LYMPHOBLASTIC LYMPHOMA RECURRENT
     Dosage: UNK
     Route: 065

REACTIONS (4)
  - Immunosuppression [Unknown]
  - Shock [Unknown]
  - Respiratory failure [Unknown]
  - Pyrexia [Unknown]
